FAERS Safety Report 9212784 (Version 1)
Quarter: 2013Q1

REPORT INFORMATION
  Report Type: Spontaneous
  Country: US (occurrence: None)
  Receive Date: 20120820
  Receipt Date: 20120820
  Transmission Date: 20140127
  Serious: No
  Sender: FDA-Public Use
  Company Number: 1000037253

PATIENT
  Age: 64 Year
  Sex: Male

DRUGS (2)
  1. VIIBRYD [Suspect]
     Indication: DEPRESSION
     Dosage: 20 MG 1IN 1 D
     Route: 048
     Dates: start: 20120706
  2. MULTIVITAMINS (MULTIVITAMINS) (MULTIVITAMINS) [Concomitant]

REACTIONS (1)
  - Insomnia [None]
